FAERS Safety Report 13880014 (Version 2)
Quarter: 2017Q3

REPORT INFORMATION
  Report Type: Spontaneous
  Country: CN (occurrence: CN)
  Receive Date: 20170818
  Receipt Date: 20170905
  Transmission Date: 20171127
  Serious: Yes (Hospitalization, Other)
  Sender: FDA-Public Use
  Company Number: CN-VIIV HEALTHCARE LIMITED-CN2017GSK126060

PATIENT

DRUGS (2)
  1. HEPSERA [Suspect]
     Active Substance: ADEFOVIR DIPIVOXIL
     Indication: HEPATITIS B
     Dosage: 1 UNK, QD
     Route: 048
  2. HEPTODIN [Suspect]
     Active Substance: LAMIVUDINE
     Indication: HEPATITIS B
     Dosage: 1 UNK, QD
     Route: 048

REACTIONS (3)
  - Drug resistance [Unknown]
  - Hepatic cancer [Unknown]
  - Blood phosphorus decreased [Unknown]
